FAERS Safety Report 11566779 (Version 1)
Quarter: 2015Q3

REPORT INFORMATION
  Report Type: Spontaneous
  Country: FR (occurrence: FR)
  Receive Date: 20150929
  Receipt Date: 20150929
  Transmission Date: 20151125
  Serious: Yes (Hospitalization)
  Sender: FDA-Public Use
  Company Number: FR-SUN PHARMACEUTICAL INDUSTRIES LTD-12SUNOL77P

PATIENT
  Age: 32 Year
  Sex: Female

DRUGS (2)
  1. OLANZAPINE 5 MG TABLETS [Suspect]
     Active Substance: OLANZAPINE
     Indication: PRODUCT USED FOR UNKNOWN INDICATION
     Route: 048
  2. DEPAKOTE [Suspect]
     Active Substance: DIVALPROEX SODIUM
     Indication: PRODUCT USED FOR UNKNOWN INDICATION
     Dosage: 50 DF, SINGLE
     Route: 048

REACTIONS (6)
  - Hyperammonaemia [Unknown]
  - Toxicity to various agents [Unknown]
  - Overdose [Unknown]
  - Suicide attempt [Unknown]
  - Lactic acidosis [Unknown]
  - Unresponsive to stimuli [Recovered/Resolved]
